FAERS Safety Report 23351091 (Version 3)
Quarter: 2024Q1

REPORT INFORMATION
  Report Type: Spontaneous
  Country: US (occurrence: US)
  Receive Date: 20231229
  Receipt Date: 20240129
  Transmission Date: 20240410
  Serious: Yes (Other)
  Sender: FDA-Public Use
  Company Number: US-PFIZER INC-PV202300205878

PATIENT
  Age: 74 Year
  Sex: Female

DRUGS (2)
  1. IBRANCE [Suspect]
     Active Substance: PALBOCICLIB
     Dosage: UNK
  2. EXEMESTANE [Suspect]
     Active Substance: EXEMESTANE
     Dosage: UNK

REACTIONS (8)
  - Diverticulitis [Not Recovered/Not Resolved]
  - Arthralgia [Unknown]
  - Eye infection [Unknown]
  - Diarrhoea [Unknown]
  - Pain [Unknown]
  - Insomnia [Recovering/Resolving]
  - Fatigue [Unknown]
  - Malaise [Unknown]
